FAERS Safety Report 26040842 (Version 1)
Quarter: 2025Q4

REPORT INFORMATION
  Report Type: Spontaneous
  Country: US (occurrence: None)
  Receive Date: 20251112
  Receipt Date: 20251112
  Transmission Date: 20260118
  Serious: No
  Sender: FDA-CTU
  Company Number: None

PATIENT
  Sex: Male

DRUGS (1)
  1. SKYRIZI [Suspect]
     Active Substance: RISANKIZUMAB-RZAA
     Indication: Crohn^s disease
     Dosage: 150 MG EVERY 8 WEEKS SUBCUTANEOUS?
     Route: 058

REACTIONS (3)
  - Condition aggravated [None]
  - Crohn^s disease [None]
  - Proctitis [None]
